FAERS Safety Report 16565624 (Version 1)
Quarter: 2019Q3

REPORT INFORMATION
  Report Type: Spontaneous
  Country: DE (occurrence: DE)
  Receive Date: 20190712
  Receipt Date: 20190712
  Transmission Date: 20191004
  Serious: Yes (Hospitalization)
  Sender: FDA-Public Use
  Company Number: DE-TEVA-2019-DE-1075362

PATIENT
  Age: 90 Year
  Sex: Male
  Weight: 85 kg

DRUGS (7)
  1. SPIRONOLACTONE. [Suspect]
     Active Substance: SPIRONOLACTONE
     Dosage: 50 MG, 0.5-0-0-0
  2. ASPIRIN. [Concomitant]
     Active Substance: ASPIRIN
     Dosage: 100 MG, 0-1-0-0
  3. PHENPROCOUMON [Concomitant]
     Active Substance: PHENPROCOUMON
     Dosage: 3 MG, ACCORDING TO INR
  4. CARVEDILOL. [Suspect]
     Active Substance: CARVEDILOL
     Dosage: 25 MG, 1-0-0.5-0
  5. PANTOPRAZOL [Concomitant]
     Active Substance: PANTOPRAZOLE SODIUM
     Dosage: 40 MG, 1-0-0-0
  6. TORASEMID [Suspect]
     Active Substance: TORSEMIDE
     Dosage: 10 MG, 1-0-0-0
  7. ALLOPURINOL. [Concomitant]
     Active Substance: ALLOPURINOL
     Dosage: 300 MG, 0.5-0-0-0

REACTIONS (2)
  - Dehydration [Unknown]
  - Hypotension [Unknown]
